FAERS Safety Report 7549017-9 (Version None)
Quarter: 2011Q2

REPORT INFORMATION
  Report Type: 
  Country: None (occurrence: None)
  Receive Date: 20110608
  Receipt Date: 20110530
  Transmission Date: 20111010
  Serious: Yes (Other)
  Sender: FDA-Public Use
  Company Number: 2011SP024809

PATIENT
  Age: 57 Year
  Sex: Male

DRUGS (2)
  1. REBETOL [Suspect]
     Indication: HEPATITIS C
     Dosage: 600 MG, QD, PO
     Route: 048
     Dates: start: 20101201
  2. PEG-INTRON [Suspect]
     Indication: HEPATITIS C
     Dosage: 60 MCG, QW, SC
     Route: 058
     Dates: start: 20101201

REACTIONS (1)
  - CARDIAC FAILURE [None]
